FAERS Safety Report 12634069 (Version 1)
Quarter: 2016Q3

REPORT INFORMATION
  Report Type: Spontaneous
  Country: GB (occurrence: GB)
  Receive Date: 20160808
  Receipt Date: 20160808
  Transmission Date: 20161109
  Serious: Yes (Life-Threatening)
  Sender: FDA-Public Use
  Company Number: GB-MYLANLABS-2016M1031687

PATIENT

DRUGS (3)
  1. WARFARIN [Suspect]
     Active Substance: WARFARIN
     Dosage: WARFARIN 3MG + 2.5MG  ALTERNATING.
  2. WARFARIN [Suspect]
     Active Substance: WARFARIN
     Dosage: WARFARIN 3MG + 2.5MG ALTERNATING.
  3. TURMERIC                           /01079601/ [Suspect]
     Active Substance: TURMERIC
     Dosage: 500 MG, UNK

REACTIONS (2)
  - Cardiac arrest [Recovered/Resolved]
  - Drug interaction [Unknown]
